FAERS Safety Report 8179849-8 (Version None)
Quarter: 2012Q1

REPORT INFORMATION
  Report Type: 
  Country: None (occurrence: None)
  Receive Date: 20120229
  Receipt Date: 20120217
  Transmission Date: 20120608
  Serious: Yes (Death)
  Sender: FDA-Public Use
  Company Number: UTC-015741

PATIENT
  Age: 64 Year
  Sex: Female
  Weight: 70.5 kg

DRUGS (5)
  1. REVATIO [Concomitant]
  2. ASPIRIN [Concomitant]
  3. DIURETICS (DIURETICS) [Concomitant]
  4. TYVASO [Suspect]
     Indication: PULMONARY ARTERIAL HYPERTENSION
     Dosage: 72 MCG (24 MCG, 3 IN 1 D), INHALATION 96 MCG (24 MCG, 4 IN 1 D), INHALATION
     Route: 055
     Dates: start: 20120201, end: 20120201
  5. TYVASO [Suspect]
     Indication: PULMONARY ARTERIAL HYPERTENSION
     Dosage: 72 MCG (24 MCG, 3 IN 1 D), INHALATION 96 MCG (24 MCG, 4 IN 1 D), INHALATION
     Route: 055
     Dates: start: 20120215

REACTIONS (1)
  - DIZZINESS [None]
